FAERS Safety Report 4636334-5 (Version None)
Quarter: 2005Q2

REPORT INFORMATION
  Report Type: 
  Country: None (occurrence: None)
  Receive Date: 20050415
  Receipt Date: 20041105
  Transmission Date: 20051028
  Serious: Yes (Other)
  Sender: FDA-Public Use
  Company Number: US-BRISTOL-MYERS SQUIBB COMPANY-12758355

PATIENT
  Age: 56 Year
  Sex: Female
  Weight: 70 kg

DRUGS (4)
  1. PARAPLATIN [Suspect]
     Indication: OVARIAN CANCER
     Dosage: IN 500 ML NORMAL SALINE; PREVIOUS CYCLE 14-OCT-2004
     Route: 042
     Dates: start: 20041104, end: 20041104
  2. BENADRYL [Concomitant]
     Indication: MULTIPLE ALLERGIES
  3. ALOXI [Concomitant]
     Indication: PREMEDICATION
     Dates: start: 20041104, end: 20041104
  4. DECADRON [Concomitant]
     Indication: PREMEDICATION
     Route: 042
     Dates: start: 20041104, end: 20041104

REACTIONS (6)
  - BLOOD PRESSURE DECREASED [None]
  - DYSPNOEA [None]
  - FLUSHING [None]
  - NAUSEA [None]
  - PRURITUS [None]
  - PULMONARY CONGESTION [None]
